FAERS Safety Report 16826492 (Version 1)
Quarter: 2019Q3

REPORT INFORMATION
  Report Type: Spontaneous
  Country: CA (occurrence: CA)
  Receive Date: 20190919
  Receipt Date: 20190919
  Transmission Date: 20191005
  Serious: Yes (Life-Threatening, Hospitalization)
  Sender: FDA-Public Use
  Company Number: CA-PFIZER INC-2019400724

PATIENT
  Age: 31 Year
  Sex: Male
  Weight: 84.81 kg

DRUGS (11)
  1. FENTANYL. [Concomitant]
     Active Substance: FENTANYL
     Dosage: UNK
  2. MIDAZOLAM [Concomitant]
     Active Substance: MIDAZOLAM HYDROCHLORIDE
     Dosage: UNK
     Route: 030
  3. KETAMINE HYDROCHLORIDE. [Concomitant]
     Active Substance: KETAMINE HYDROCHLORIDE
     Dosage: UNK
  4. PROPOFOL. [Concomitant]
     Active Substance: PROPOFOL
     Dosage: UNK
  5. ZEMURON [Interacting]
     Active Substance: ROCURONIUM BROMIDE
     Indication: CLAVICLE FRACTURE
  6. SUCCINYLCHOLINE CHLORIDE. [Interacting]
     Active Substance: SUCCINYLCHOLINE CHLORIDE
     Indication: CLAVICLE FRACTURE
  7. ZEMURON [Interacting]
     Active Substance: ROCURONIUM BROMIDE
     Indication: ENDOTRACHEAL INTUBATION
     Dosage: 4 MG, UNK (TOTAL)
     Route: 042
  8. DEXAMETHASONE. [Concomitant]
     Active Substance: DEXAMETHASONE
     Dosage: UNK
  9. SUCCINYLCHOLINE CHLORIDE. [Suspect]
     Active Substance: SUCCINYLCHOLINE CHLORIDE
     Indication: ENDOTRACHEAL INTUBATION
     Dosage: 200 MG, UNK (TOTAL)
     Route: 042
  10. SUCCINYLCHOLINE CHLORIDE. [Interacting]
     Active Substance: SUCCINYLCHOLINE CHLORIDE
     Indication: BONE OPERATION
  11. ZEMURON [Interacting]
     Active Substance: ROCURONIUM BROMIDE
     Indication: BONE OPERATION

REACTIONS (5)
  - Blood pressure decreased [Recovered/Resolved]
  - Hypoventilation [Recovered/Resolved]
  - Anaphylactic shock [Recovered/Resolved]
  - Cardio-respiratory arrest [Recovered/Resolved]
  - Drug interaction [Recovered/Resolved]
